FAERS Safety Report 14253368 (Version 1)
Quarter: 2017Q4

REPORT INFORMATION
  Report Type: Spontaneous
  Country: GB (occurrence: GB)
  Receive Date: 20171205
  Receipt Date: 20171205
  Transmission Date: 20180321
  Serious: Yes (Other)
  Sender: FDA-Public Use
  Company Number: GB-BAYER-2017-234201

PATIENT
  Age: 59 Year
  Sex: Female
  Weight: 52.97 kg

DRUGS (4)
  1. FENBID [Concomitant]
     Active Substance: IBUPROFEN
     Dosage: UNK UNK, TID; APPLY TO THE AFFECTED AREA AND RUB IN GENTLY UP TO THREE TIMES A DAY
     Route: 061
  2. LOSARTAN. [Concomitant]
     Active Substance: LOSARTAN
     Dosage: 1 DF, QD
     Dates: start: 20170511
  3. NAPROXEN SODIUM ({= 220 MG) [Suspect]
     Active Substance: NAPROXEN SODIUM
     Dosage: UNK
     Route: 048
  4. CALCICHEW D3 [Concomitant]
     Active Substance: CALCIUM\CHOLECALCIFEROL
     Dosage: 2 DF, QD
     Dates: start: 20170511

REACTIONS (1)
  - Renal disorder [Recovered/Resolved]

NARRATIVE: CASE EVENT DATE: 20171113
